FAERS Safety Report 10455517 (Version 1)
Quarter: 2014Q3

REPORT INFORMATION
  Report Type: Spontaneous
  Country: US (occurrence: None)
  Receive Date: 20140915
  Receipt Date: 20140915
  Transmission Date: 20150326
  Serious: Yes (Disabling)
  Sender: FDA-Public Use
  Company Number: None

PATIENT
  Age: 33 Year
  Sex: Male
  Weight: 82.56 kg

DRUGS (1)
  1. CIPROFLOXACIN. [Suspect]
     Active Substance: CIPROFLOXACIN
     Indication: ANTIBIOTIC PROPHYLAXIS
     Dosage: 1 PILL TWICE DAILY TAKEN BY MOUTH
     Route: 048
     Dates: start: 20140812, end: 20140818

REACTIONS (18)
  - Diarrhoea [None]
  - Confusional state [None]
  - Muscle spasms [None]
  - Arthritis [None]
  - Feeling abnormal [None]
  - Memory impairment [None]
  - Arthralgia [None]
  - Tendon disorder [None]
  - Muscular weakness [None]
  - Asthenia [None]
  - Thinking abnormal [None]
  - Pain [None]
  - Nausea [None]
  - Myalgia [None]
  - Panic attack [None]
  - Joint crepitation [None]
  - Nervous system disorder [None]
  - Neuralgia [None]

NARRATIVE: CASE EVENT DATE: 20140818
